FAERS Safety Report 24528538 (Version 1)
Quarter: 2024Q4

REPORT INFORMATION
  Report Type: Spontaneous
  Country: US (occurrence: None)
  Receive Date: 20241018
  Receipt Date: 20241018
  Transmission Date: 20250115
  Serious: No
  Sender: Public
  Company Number: None

PATIENT
  Sex: 0

DRUGS (2)
  1. IMMUNE GLOBULIN INTRAVENOUS (HUMAN) [Suspect]
     Active Substance: IMMUNE GLOBULIN INTRAVENOUS (HUMAN)
  2. ALBUMIN (HUMAN) [Suspect]
     Active Substance: ALBUMIN HUMAN

REACTIONS (1)
  - Product packaging confusion [None]
